FAERS Safety Report 24080639 (Version 1)
Quarter: 2024Q3

REPORT INFORMATION
  Report Type: Spontaneous
  Country: CN (occurrence: None)
  Receive Date: 20240711
  Receipt Date: 20240711
  Transmission Date: 20241017
  Serious: Yes (Death, Other)
  Sender: ASTRAZENECA
  Company Number: 2024A157476

PATIENT
  Age: 66 Year
  Sex: Female

DRUGS (2)
  1. OSIMERTINIB [Suspect]
     Active Substance: OSIMERTINIB
     Indication: Lung adenocarcinoma
     Route: 048
  2. CRIZOTINIB [Concomitant]
     Active Substance: CRIZOTINIB
     Route: 048

REACTIONS (3)
  - Malignant neoplasm progression [Fatal]
  - Drug resistance [Unknown]
  - Drug effect less than expected [Unknown]
